FAERS Safety Report 7012804-X (Version None)
Quarter: 2010Q3

REPORT INFORMATION
  Report Type: 
  Country: None (occurrence: None)
  Receive Date: 20100924
  Receipt Date: 20100916
  Transmission Date: 20110219
  Serious: Yes (Other)
  Sender: FDA-Public Use
  Company Number: B0660501A

PATIENT
  Sex: Female

DRUGS (2)
  1. ZYBAN [Suspect]
     Indication: PRODUCT USED FOR UNKNOWN INDICATION
     Route: 065
     Dates: start: 20100524
  2. YASMIN [Concomitant]

REACTIONS (4)
  - DEPRESSION [None]
  - MENTAL STATUS CHANGES [None]
  - SLEEP DISORDER [None]
  - SUICIDAL IDEATION [None]
